FAERS Safety Report 9826096 (Version 1)
Quarter: 2013Q4

REPORT INFORMATION
  Report Type: Spontaneous
  Country: US (occurrence: None)
  Receive Date: 20131223
  Receipt Date: 20131223
  Transmission Date: 20140711
  Serious: Yes (Other)
  Sender: FDA-Public Use
  Company Number: 222696LEO

PATIENT
  Age: 54 Year
  Sex: Female

DRUGS (2)
  1. PICATO [Suspect]
     Indication: ACTINIC KERATOSIS
     Route: 061
     Dates: start: 20130411, end: 20130413
  2. ATRALIN(TRETINOIN) [Concomitant]

REACTIONS (2)
  - Vaginal haemorrhage [None]
  - Abdominal pain [None]
